FAERS Safety Report 4751734-0 (Version None)
Quarter: 2005Q3

REPORT INFORMATION
  Report Type: 
  Country: None (occurrence: None)
  Receive Date: 20050822
  Receipt Date: 20050822
  Transmission Date: 20060218
  Serious: Yes (Other)
  Sender: FDA-Public Use
  Company Number: None

PATIENT
  Age: 43 Year
  Sex: Female
  Weight: 58.9676 kg

DRUGS (3)
  1. CALAN [Suspect]
     Indication: MIGRAINE
     Dosage: 125MG./ 2 PER DAY WITH MEAL    ONCE A DAY PO
     Route: 048
     Dates: start: 20040901, end: 20050330
  2. SYNTHROID [Concomitant]
  3. ASPIRIN [Concomitant]

REACTIONS (8)
  - BIPOLAR DISORDER [None]
  - EATING DISORDER [None]
  - HYPOMANIA [None]
  - IMPAIRED WORK ABILITY [None]
  - INSOMNIA [None]
  - MAJOR DEPRESSION [None]
  - MALAISE [None]
  - MANIA [None]
